FAERS Safety Report 5630380-0 (Version None)
Quarter: 2008Q1

REPORT INFORMATION
  Report Type: 
  Country: None (occurrence: None)
  Receive Date: 20080219
  Receipt Date: 20080213
  Transmission Date: 20080703
  Serious: Yes (Hospitalization)
  Sender: FDA-Public Use
  Company Number: US-BRISTOL-MYERS SQUIBB COMPANY-14076137

PATIENT

DRUGS (2)
  1. ABILIFY [Suspect]
     Indication: SCHIZOPHRENIA
  2. CLOZARIL [Concomitant]

REACTIONS (1)
  - PSYCHOTIC DISORDER [None]
